FAERS Safety Report 5094596-7 (Version None)
Quarter: 2006Q3

REPORT INFORMATION
  Report Type: 
  Country: None (occurrence: None)
  Receive Date: 20060830
  Receipt Date: 20060814
  Transmission Date: 20061208
  Serious: Yes (Hospitalization)
  Sender: FDA-Public Use
  Company Number: US200606000407

PATIENT
  Sex: Female
  Weight: 95.2 kg

DRUGS (1)
  1. ZYPREXA [Suspect]
     Dates: start: 19970101, end: 20010101

REACTIONS (2)
  - CARDIAC DISORDER [None]
  - DIABETES MELLITUS [None]
